FAERS Safety Report 17139226 (Version 3)
Quarter: 2020Q3

REPORT INFORMATION
  Report Type: Spontaneous
  Country: US (occurrence: US)
  Receive Date: 20191211
  Receipt Date: 20200806
  Transmission Date: 20201102
  Serious: Yes (Other)
  Sender: FDA-Public Use
  Company Number: US-GILEAD-2019-0441952

PATIENT
  Sex: Male

DRUGS (2)
  1. VIREAD [Suspect]
     Active Substance: TENOFOVIR DISOPROXIL FUMARATE
     Indication: HIV INFECTION
     Dosage: UNK
     Route: 048
     Dates: start: 2004, end: 2007
  2. TRUVADA [Suspect]
     Active Substance: EMTRICITABINE\TENOFOVIR DISOPROXIL FUMARATE
     Indication: HIV INFECTION
     Dosage: UNK
     Route: 048
     Dates: start: 2007, end: 2017

REACTIONS (14)
  - Fracture [Unknown]
  - Teeth brittle [Unknown]
  - Emotional distress [Unknown]
  - Anxiety [Unknown]
  - Joint dislocation [Unknown]
  - Tooth loss [Unknown]
  - Pain [Unknown]
  - Anhedonia [Unknown]
  - Spinal osteoarthritis [Unknown]
  - Bone loss [Unknown]
  - Tooth disorder [Unknown]
  - Economic problem [Unknown]
  - Renal cyst [Unknown]
  - Bone density decreased [Unknown]

NARRATIVE: CASE EVENT DATE: 2010
